FAERS Safety Report 5996746-4 (Version None)
Quarter: 2008Q4

REPORT INFORMATION
  Report Type: 
  Country: None (occurrence: None)
  Receive Date: 20081212
  Receipt Date: 20081023
  Transmission Date: 20090506
  Serious: No
  Sender: FDA-Public Use
  Company Number: US-ABBOTT-08P-163-0483554-00

PATIENT
  Sex: Male
  Weight: 68.1 kg

DRUGS (4)
  1. HUMIRA [Suspect]
     Indication: COLITIS ULCERATIVE
     Route: 058
     Dates: start: 20081023, end: 20081023
  2. HUMIRA [Suspect]
     Route: 058
  3. MESALAMINE [Concomitant]
     Indication: COLITIS ULCERATIVE
  4. PREDNISONE TAB [Concomitant]
     Indication: COLITIS ULCERATIVE

REACTIONS (1)
  - INCORRECT DOSE ADMINISTERED [None]
